FAERS Safety Report 25396725 (Version 1)
Quarter: 2025Q2

REPORT INFORMATION
  Report Type: Spontaneous
  Country: LT (occurrence: LT)
  Receive Date: 20250604
  Receipt Date: 20250604
  Transmission Date: 20250716
  Serious: Yes (Other)
  Sender: PFIZER
  Company Number: None

PATIENT
  Sex: Female
  Weight: 83 kg

DRUGS (1)
  1. MEDROL [Suspect]
     Active Substance: METHYLPREDNISOLONE
     Indication: Sciatica
     Dosage: 1 TABLET DAILY
     Route: 048
     Dates: start: 202312, end: 202412

REACTIONS (9)
  - Weight increased [Recovering/Resolving]
  - Swelling [Recovering/Resolving]
  - Gait disturbance [Recovering/Resolving]
  - Cardiac disorder [Recovering/Resolving]
  - Blood pressure abnormal [Recovering/Resolving]
  - Palpitations [Recovering/Resolving]
  - Fluid retention [Recovering/Resolving]
  - C-reactive protein increased [Unknown]
  - Off label use [Unknown]

NARRATIVE: CASE EVENT DATE: 20240201
